FAERS Safety Report 5301749-9 (Version None)
Quarter: 2007Q2

REPORT INFORMATION
  Report Type: 
  Country: None (occurrence: None)
  Receive Date: 20070419
  Receipt Date: 20070412
  Transmission Date: 20071010
  Serious: Yes (Hospitalization)
  Sender: FDA-Public Use
  Company Number: FR-JNJFOC-20070402775

PATIENT
  Age: 37 Year
  Sex: Female

DRUGS (7)
  1. RISPERDAL [Suspect]
     Indication: DRUG USE FOR UNKNOWN INDICATION
     Route: 048
  2. IBUPROFEN [Suspect]
     Indication: ABDOMINAL PAIN
     Route: 048
  3. DEPAKENE [Suspect]
     Indication: EPILEPSY
     Route: 048
  4. DUPHALAC [Suspect]
     Indication: DRUG USE FOR UNKNOWN INDICATION
     Route: 048
  5. NOZINAN [Suspect]
     Indication: DRUG USE FOR UNKNOWN INDICATION
  6. ALEPSAL [Suspect]
     Indication: EPILEPSY
     Route: 048
  7. DOLIPRANE [Concomitant]

REACTIONS (3)
  - PANCREATITIS ACUTE [None]
  - PERITONEAL EFFUSION [None]
  - PLEURAL EFFUSION [None]
